FAERS Safety Report 7239685-3 (Version None)
Quarter: 2011Q1

REPORT INFORMATION
  Report Type: 
  Country: None (occurrence: None)
  Receive Date: 20110122
  Receipt Date: 20101012
  Transmission Date: 20110831
  Serious: No
  Sender: FDA-Public Use
  Company Number: US-ALLERGAN-1013129US

PATIENT
  Age: 53 Year
  Sex: Female

DRUGS (1)
  1. LATISSE [Suspect]
     Indication: GROWTH OF EYELASHES
     Dosage: UNK
     Route: 061
     Dates: start: 20100901

REACTIONS (4)
  - SCLERAL HYPERAEMIA [None]
  - DRUG ADMINISTERED AT INAPPROPRIATE SITE [None]
  - ERYTHEMA OF EYELID [None]
  - EYELID OEDEMA [None]
